FAERS Safety Report 4710161-2 (Version None)
Quarter: 2005Q2

REPORT INFORMATION
  Report Type: 
  Country: None (occurrence: None)
  Receive Date: 20050629
  Receipt Date: 20050527
  Transmission Date: 20051028
  Serious: No
  Sender: FDA-Public Use
  Company Number: 05P-163-0301764-00

PATIENT
  Age: 86 Year
  Sex: Female
  Weight: 58.9676 kg

DRUGS (10)
  1. HUMIRA [Suspect]
     Indication: RHEUMATOID ARTHRITIS
     Dosage: 40 MG, 1 IN 2 WK, SUBCUTANEOUS
     Route: 058
     Dates: start: 20050201
  2. RISEDRONATE SODIUM [Concomitant]
  3. QUINAPRIL HCL [Concomitant]
  4. FUROSEMIDE [Concomitant]
  5. FOLGARD [Concomitant]
  6. CILOSTAZOL [Concomitant]
  7. IMITREX [Concomitant]
  8. ASPIRIN [Concomitant]
  9. FAMOTIDINE [Concomitant]
  10. CLINDAMYCIN [Concomitant]

REACTIONS (1)
  - DRUG INEFFECTIVE [None]
